FAERS Safety Report 8255128 (Version 4)
Quarter: 2012Q4

REPORT INFORMATION
  Report Type: Spontaneous
  Country: GB (occurrence: None)
  Receive Date: 20111114
  Receipt Date: 20120822
  Transmission Date: 20130627
  Serious: Yes (Life-Threatening, Hospitalization, Disabling, Other)
  Sender: FDA-Public Use
  Company Number: 2011AP002534

PATIENT
  Age: 66 Year
  Sex: Male

DRUGS (8)
  1. LEFLUNOMIDE [Suspect]
     Indication: SERONEGATIVE ARTHRITIS
     Dosage: 10 MG;QD
     Route: 048
     Dates: start: 20110427, end: 20110603
  2. ERYTHROMYCIN [Suspect]
     Indication: WOUND INFECTION
     Dosage: 250 MG;QID
     Route: 048
     Dates: start: 20110524, end: 20110602
  3. METHOTREXATE [Suspect]
     Indication: RHEUMATOID ARTHRITIS
     Dosage: 20 MG;QW
     Route: 048
     Dates: end: 20110516
  4. ALLOPURINOL [Concomitant]
  5. AMITRIPTYLINE HYDROCHLORIDE [Concomitant]
  6. ATENOLOL [Concomitant]
  7. PREDNISOLONE [Concomitant]
  8. DIHYDROCODEINE BITARTRATE [Concomitant]

REACTIONS (10)
  - DELIRIUM [None]
  - ERYTHEMA MULTIFORME [None]
  - HEPATIC FAILURE [None]
  - INFARCTION [None]
  - RENAL FAILURE ACUTE [None]
  - RESPIRATORY FAILURE [None]
  - VASCULITIC RASH [None]
  - GENERAL PHYSICAL HEALTH DETERIORATION [None]
  - LETHARGY [None]
  - ORGAN FAILURE [None]
